FAERS Safety Report 7435164 (Version 2)
Quarter: 2013Q3

REPORT INFORMATION
  Report Type: Spontaneous
  Country: US (occurrence: US)
  Receive Date: 20100624
  Receipt Date: 20130812
  Transmission Date: 20140515
  Serious: No
  Sender: FDA-Public Use
  Company Number: US-PFIZER INC-2008153582

PATIENT
  Age: 81 Year
  Sex: Male
  Weight: 70.3 kg

DRUGS (2)
  1. XALATAN [Suspect]
     Indication: GLAUCOMA
     Dosage: UNK
     Dates: start: 200505
  2. LORAZEPAM [Concomitant]
     Dosage: UNK

REACTIONS (3)
  - Vitreous floaters [Unknown]
  - Visual impairment [Unknown]
  - Eye irritation [Unknown]
